FAERS Safety Report 5476525-7 (Version None)
Quarter: 2007Q4

REPORT INFORMATION
  Report Type: 
  Country: None (occurrence: None)
  Receive Date: 20071003
  Receipt Date: 20070920
  Transmission Date: 20080405
  Serious: Yes (Hospitalization)
  Sender: FDA-Public Use
  Company Number: GB-TYCO HEALTHCARE/MALLINCKRODT-T200701155

PATIENT

DRUGS (1)
  1. OPTIRAY 300 [Suspect]
     Dosage: 40 ML, SINGLE
     Route: 042
     Dates: start: 20070907, end: 20070907

REACTIONS (4)
  - ERYTHEMA [None]
  - INCOHERENT [None]
  - MALAISE [None]
  - SWELLING FACE [None]
